FAERS Safety Report 18627196 (Version 1)
Quarter: 2020Q4

REPORT INFORMATION
  Report Type: Spontaneous
  Country: US (occurrence: US)
  Receive Date: 20201217
  Receipt Date: 20201217
  Transmission Date: 20210114
  Serious: Yes (Hospitalization, Disabling, Other)
  Sender: FDA-Public Use
  Company Number: US-ELI_LILLY_AND_COMPANY-US202012005289

PATIENT
  Sex: Female

DRUGS (5)
  1. TRULICITY [Suspect]
     Active Substance: DULAGLUTIDE
     Indication: DIABETES MELLITUS
     Dosage: 1.5 MG, UNKNOWN
     Route: 058
  2. NOVOLOG [Concomitant]
     Active Substance: INSULIN ASPART
     Indication: DIABETES MELLITUS
     Dosage: 16 U, EACH MORNING
  3. GLIMEPIRIDE. [Concomitant]
     Active Substance: GLIMEPIRIDE
     Indication: DIABETES MELLITUS
     Dosage: 4 MG, BID
  4. LANTUS [Concomitant]
     Active Substance: INSULIN GLARGINE
     Indication: DIABETES MELLITUS
     Dosage: 66 U, EACH EVENING
  5. JANUVIA [Concomitant]
     Active Substance: SITAGLIPTIN PHOSPHATE
     Indication: DIABETES MELLITUS
     Dosage: 100 MG, DAILY

REACTIONS (10)
  - Bladder pain [Unknown]
  - Urinary incontinence [Unknown]
  - Blood glucose increased [Recovering/Resolving]
  - Nephrolithiasis [Recovering/Resolving]
  - Sleep disorder due to general medical condition, insomnia type [Unknown]
  - Increased appetite [Unknown]
  - Weight increased [Unknown]
  - Radiation injury [Recovering/Resolving]
  - Cervix carcinoma [Recovering/Resolving]
  - Urinary tract infection [Recovering/Resolving]
